FAERS Safety Report 7197884-3 (Version None)
Quarter: 2010Q4

REPORT INFORMATION
  Report Type: 
  Country: None (occurrence: None)
  Receive Date: 20101227
  Receipt Date: 20101216
  Transmission Date: 20110411
  Serious: Yes (Hospitalization)
  Sender: FDA-Public Use
  Company Number: FR-ASTRAZENECA-2010SE56921

PATIENT
  Age: 22657 Day
  Sex: Female

DRUGS (6)
  1. NEXIUM [Suspect]
     Route: 048
     Dates: end: 20101112
  2. EFFEXOR [Suspect]
     Route: 048
     Dates: start: 20100501, end: 20101029
  3. MEPRONIZINE [Suspect]
     Route: 048
     Dates: end: 20101112
  4. TETRAZEPAM [Concomitant]
  5. SPASFON [Concomitant]
     Indication: PAIN
     Dosage: 6 TABLETS PER DAY AS REQUIRED
     Route: 048
     Dates: end: 20101112
  6. BROMAZEPAM [Concomitant]
     Dates: end: 20101029

REACTIONS (2)
  - CONVULSION [None]
  - HYPONATRAEMIA [None]
